FAERS Safety Report 19705738 (Version 2)
Quarter: 2021Q3

REPORT INFORMATION
  Report Type: Spontaneous
  Country: US (occurrence: US)
  Receive Date: 20210817
  Receipt Date: 20210901
  Transmission Date: 20211014
  Serious: Yes (Other)
  Sender: FDA-Public Use
  Company Number: US-SA-2021SA269369

PATIENT
  Age: 65 Year
  Sex: Male
  Weight: 86.17 kg

DRUGS (7)
  1. AMBIEN [Concomitant]
     Active Substance: ZOLPIDEM TARTRATE
     Indication: SLEEP DISORDER
     Dosage: 1 DF, PRN
     Route: 048
  2. DUPIXENT [Suspect]
     Active Substance: DUPILUMAB
     Indication: ECZEMA
     Dosage: 600 MG, 1X
     Route: 058
     Dates: start: 20210803, end: 20210803
  3. SUDAFED [Concomitant]
     Active Substance: PSEUDOEPHEDRINE HYDROCHLORIDE
     Indication: PULMONARY CONGESTION
     Dosage: 30 MG, Q4H
     Route: 048
  4. IBUPROFEN. [Concomitant]
     Active Substance: IBUPROFEN
     Route: 048
  5. RITALIN [Concomitant]
     Active Substance: METHYLPHENIDATE HYDROCHLORIDE
     Dosage: 15 MG, TID
     Route: 048
  6. BENADRYL [Concomitant]
     Active Substance: DIPHENHYDRAMINE HYDROCHLORIDE
     Dosage: 50 MG
     Route: 048
  7. DESOWEN [Concomitant]
     Active Substance: DESONIDE
     Indication: ECZEMA
     Dosage: UNK UNK, BID

REACTIONS (17)
  - Rash [Unknown]
  - Pruritus [Unknown]
  - Visual impairment [Recovering/Resolving]
  - Drug intolerance [Unknown]
  - Eczema [Unknown]
  - Pharyngeal swelling [Recovering/Resolving]
  - Sinusitis [Recovering/Resolving]
  - Dyspnoea [Recovering/Resolving]
  - Gait disturbance [Recovering/Resolving]
  - Skin discolouration [Unknown]
  - Conjunctivitis allergic [Unknown]
  - Pulmonary congestion [Not Recovered/Not Resolved]
  - Eyelids pruritus [Unknown]
  - Palmar erythema [Unknown]
  - Throat irritation [Unknown]
  - Sneezing [Unknown]
  - Skin lesion [Unknown]

NARRATIVE: CASE EVENT DATE: 202108
